FAERS Safety Report 7207538-2 (Version None)
Quarter: 2011Q1

REPORT INFORMATION
  Report Type: 
  Country: None (occurrence: None)
  Receive Date: 20110103
  Receipt Date: 20101116
  Transmission Date: 20110831
  Serious: No
  Sender: FDA-Public Use
  Company Number: US-JNJFOC-20101202624

PATIENT
  Age: 22 Year
  Sex: Male

DRUGS (3)
  1. DIAZEPAM [Concomitant]
  2. RISPERDAL [Concomitant]
  3. INVEGA [Suspect]
     Indication: SCHIZOPHRENIA
     Route: 048

REACTIONS (1)
  - PYREXIA [None]
